FAERS Safety Report 23843101 (Version 1)
Quarter: 2024Q2

REPORT INFORMATION
  Report Type: Spontaneous
  Country: US (occurrence: None)
  Receive Date: 20240509
  Receipt Date: 20240509
  Transmission Date: 20240715
  Serious: Yes (Life-Threatening, Hospitalization, Other)
  Sender: FDA-Public Use
  Company Number: None

PATIENT
  Age: 39 Year
  Sex: Male
  Weight: 130.5 kg

DRUGS (1)
  1. WEGOVY [Suspect]
     Active Substance: SEMAGLUTIDE

REACTIONS (13)
  - Haemoptysis [None]
  - Rectal tenesmus [None]
  - Musculoskeletal pain [None]
  - Vomiting projectile [None]
  - Diarrhoea [None]
  - Dehydration [None]
  - Constipation [None]
  - Movement disorder [None]
  - Asthenia [None]
  - Gait disturbance [None]
  - Suicidal ideation [None]
  - Product complaint [None]
  - Near death experience [None]

NARRATIVE: CASE EVENT DATE: 20240501
